FAERS Safety Report 8570903-5 (Version None)
Quarter: 2012Q3

REPORT INFORMATION
  Report Type: 
  Country: None (occurrence: None)
  Receive Date: 20120806
  Receipt Date: 20120726
  Transmission Date: 20120928
  Serious: No
  Sender: FDA-Public Use
  Company Number: US-BIOGENIDEC-2010BI042972

PATIENT
  Sex: Female

DRUGS (5)
  1. TYSABRI [Suspect]
     Indication: MULTIPLE SCLEROSIS
     Route: 042
     Dates: start: 20101025, end: 20110201
  2. AVONEX [Concomitant]
     Indication: MULTIPLE SCLEROSIS
     Route: 030
  3. ZANAFLEX [Concomitant]
     Indication: MUSCLE SPASMS
  4. MECLIZINE [Concomitant]
     Indication: MULTIPLE SCLEROSIS
  5. KLONOPIN [Concomitant]
     Indication: HEAD TITUBATION

REACTIONS (15)
  - LOSS OF CONSCIOUSNESS [None]
  - PAIN [None]
  - BALANCE DISORDER [None]
  - MOOD ALTERED [None]
  - PRURITUS [None]
  - COGNITIVE DISORDER [None]
  - HYPOAESTHESIA [None]
  - SCOTOMA [None]
  - DIZZINESS [None]
  - VISION BLURRED [None]
  - GAIT DISTURBANCE [None]
  - VISUAL IMPAIRMENT [None]
  - HYPOTENSION [None]
  - HEADACHE [None]
  - MULTIPLE SCLEROSIS [None]
